FAERS Safety Report 9343929 (Version 1)
Quarter: 2013Q2

REPORT INFORMATION
  Report Type: Spontaneous
  Country: US (occurrence: US)
  Receive Date: 20130612
  Receipt Date: 20130612
  Transmission Date: 20140414
  Serious: Yes (Other)
  Sender: FDA-Public Use
  Company Number: US-BAYER-2013-071385

PATIENT
  Age: 17 Year
  Sex: Female
  Weight: 69.84 kg

DRUGS (10)
  1. YAZ [Suspect]
     Indication: DYSFUNCTIONAL UTERINE BLEEDING
  2. OCELLA [Suspect]
  3. TOPAMAX [Concomitant]
     Dosage: 125 MG, UNK
     Dates: start: 20091120
  4. AMBIEN [Concomitant]
     Dosage: 10 MG, UNK
     Dates: start: 20091120
  5. NASONEX [Concomitant]
     Dosage: UNK
     Dates: start: 20091120
  6. ZANTAC [Concomitant]
     Dosage: 300 MG, UNK
     Dates: start: 20091120
  7. RISPERDAL [Concomitant]
     Dosage: 2 MG, UNK
     Dates: start: 20091120
  8. PHENERGAN [Concomitant]
     Dosage: UNK
     Dates: start: 20091120
  9. CLARITIN [Concomitant]
     Dosage: 10 MG, UNK
     Dates: start: 20091120
  10. MIDRIN [Concomitant]
     Dosage: UNK UNK, PRN
     Dates: start: 20091120

REACTIONS (1)
  - Biliary dyskinesia [None]
